FAERS Safety Report 21777303 (Version 1)
Quarter: 2022Q4

REPORT INFORMATION
  Report Type: Spontaneous
  Country: US (occurrence: None)
  Receive Date: 20221226
  Receipt Date: 20221226
  Transmission Date: 20230113
  Serious: No
  Sender: FDA-Public Use
  Company Number: 2022A402849

PATIENT
  Sex: Male
  Weight: 90.7 kg

DRUGS (5)
  1. PULMICORT FLEXHALER [Suspect]
     Active Substance: BUDESONIDE
     Indication: Hypersensitivity
     Dosage: 180MCG, TWO INHALATIONS, TWO TIMES A DAY360UG/INHAL TWO TIMES A DAY
     Route: 055
     Dates: start: 202208
  2. PULMICORT FLEXHALER [Suspect]
     Active Substance: BUDESONIDE
     Indication: Asthma
     Dosage: 180MCG, TWO INHALATIONS, TWO TIMES A DAY360UG/INHAL TWO TIMES A DAY
     Route: 055
     Dates: start: 202208
  3. PULMICORT FLEXHALER [Suspect]
     Active Substance: BUDESONIDE
     Indication: Hypersensitivity
     Dosage: 180MCG, TWO INHALATIONS ONE TIME A DAY
     Route: 055
  4. PULMICORT FLEXHALER [Suspect]
     Active Substance: BUDESONIDE
     Indication: Asthma
     Dosage: 180MCG, TWO INHALATIONS ONE TIME A DAY
     Route: 055
  5. ALBUTEROL [Concomitant]
     Active Substance: ALBUTEROL

REACTIONS (4)
  - Wheezing [Not Recovered/Not Resolved]
  - Device use issue [Unknown]
  - Intentional product misuse [Unknown]
  - Device malfunction [Unknown]
